FAERS Safety Report 6003089-1 (Version None)
Quarter: 2008Q4

REPORT INFORMATION
  Report Type: 
  Country: None (occurrence: None)
  Receive Date: 20081215
  Receipt Date: 20081215
  Transmission Date: 20090506
  Serious: No
  Sender: FDA-Public Use
  Company Number: None

PATIENT
  Age: 61 Year
  Sex: Male
  Weight: 104.3273 kg

DRUGS (1)
  1. AMLODIPINE [Suspect]
     Indication: HYPERTENSION
     Dosage: FMG ONCE A DAY
     Dates: start: 20080201, end: 20081213

REACTIONS (4)
  - ASTHENOPIA [None]
  - EYE IRRITATION [None]
  - NO THERAPEUTIC RESPONSE [None]
  - VISUAL ACUITY REDUCED [None]
